FAERS Safety Report 10290679 (Version 3)
Quarter: 2014Q3

REPORT INFORMATION
  Report Type: Spontaneous
  Country: JP (occurrence: JP)
  Receive Date: 20140710
  Receipt Date: 20140815
  Transmission Date: 20150326
  Serious: Yes (Death, Disabling, Other)
  Sender: FDA-Public Use
  Company Number: JP-OTSUKA-JP-2014-15025

PATIENT
  Age: 73 Year
  Sex: Female
  Weight: 65 kg

DRUGS (8)
  1. SAMSCA [Suspect]
     Active Substance: TOLVAPTAN
     Indication: CARDIAC FAILURE
     Dosage: 15 MG MILLIGRAM(S), QD
     Route: 048
     Dates: start: 20140522, end: 20140527
  2. LUPRAC [Concomitant]
     Active Substance: TORSEMIDE
     Indication: OEDEMA
     Dosage: 8 MG MILLIGRAM(S), QD
     Route: 048
     Dates: start: 20140512, end: 20140701
  3. NORVASC [Concomitant]
     Active Substance: AMLODIPINE BESYLATE
     Indication: HYPERTENSION
     Dosage: 5 MG MILLIGRAM(S), QD
     Route: 048
     Dates: start: 20140514, end: 20140701
  4. SOLDACTONE [Concomitant]
     Active Substance: CANRENOATE POTASSIUM
     Indication: OEDEMA
     Dosage: 200 MG MILLIGRAM(S), QD
     Route: 042
     Dates: start: 20140512, end: 20140604
  5. GASTER [Concomitant]
     Active Substance: FAMOTIDINE
     Indication: GASTRIC MUCOSAL LESION
     Dosage: 20 MG MILLIGRAM(S), QD
     Route: 048
     Dates: start: 2011, end: 20140701
  6. PREDNISOLONE. [Concomitant]
     Active Substance: PREDNISOLONE
     Indication: RHEUMATOID VASCULITIS
     Dosage: 12.5 MG MILLIGRAM(S), QD
     Route: 048
     Dates: start: 2013, end: 20140701
  7. LOXONIN [Concomitant]
     Active Substance: LOXOPROFEN SODIUM
     Indication: RHEUMATOID VASCULITIS
     Dosage: 120 MG MILLIGRAM(S), BID
     Route: 048
     Dates: start: 2013, end: 20140701
  8. LASIX M [Concomitant]
     Active Substance: FUROSEMIDE
     Indication: OEDEMA
     Dosage: 20 MG MILLIGRAM(S), QD
     Route: 042
     Dates: start: 20140508, end: 20140701

REACTIONS (5)
  - Pyrexia [Recovered/Resolved]
  - Renal failure acute [Recovering/Resolving]
  - C-reactive protein increased [Unknown]
  - Haematuria [Unknown]
  - Pulmonary oedema [Fatal]

NARRATIVE: CASE EVENT DATE: 20140523
